FAERS Safety Report 21759050 (Version 7)
Quarter: 2023Q1

REPORT INFORMATION
  Report Type: Report from Study
  Country: CA (occurrence: CA)
  Receive Date: 20221221
  Receipt Date: 20230320
  Transmission Date: 20230418
  Serious: Yes (Hospitalization, Other)
  Sender: FDA-Public Use
  Company Number: CA-JNJFOC-20221214427

PATIENT
  Age: 61 Year
  Sex: Male

DRUGS (5)
  1. REMICADE [Suspect]
     Active Substance: INFLIXIMAB
     Indication: Colitis ulcerative
     Route: 042
     Dates: start: 20221026
  2. REMICADE [Suspect]
     Active Substance: INFLIXIMAB
     Dosage: ON 20-JAN-2023, PATIENT RECEIVED 10 MG/KG.?REMICADE INFUSION AT 10 MG/KG AS FAST AS POSSIBLE. HAS HA
     Route: 042
     Dates: start: 2022
  3. REMICADE [Suspect]
     Active Substance: INFLIXIMAB
     Dosage: DOSE INCREASED, STAT DOSE
     Route: 042
  4. PREDNISONE [Concomitant]
     Active Substance: PREDNISONE
     Indication: Product used for unknown indication
     Route: 065
  5. PREDNISONE [Concomitant]
     Active Substance: PREDNISONE
     Route: 065

REACTIONS (8)
  - Clostridium difficile infection [Recovered/Resolved]
  - Infection parasitic [Unknown]
  - Hospitalisation [Unknown]
  - Transfusion [Unknown]
  - Colitis ulcerative [Unknown]
  - Drug specific antibody present [Unknown]
  - Drug level abnormal [Unknown]
  - Off label use [Unknown]

NARRATIVE: CASE EVENT DATE: 20220101
